FAERS Safety Report 8480166-7 (Version None)
Quarter: 2012Q2

REPORT INFORMATION
  Report Type: 
  Country: None (occurrence: None)
  Receive Date: 20120629
  Receipt Date: 20120622
  Transmission Date: 20120825
  Serious: Yes (Hospitalization)
  Sender: FDA-Public Use
  Company Number: US-MERCK-1204USA00036

PATIENT
  Age: 51 Year
  Sex: Female
  Weight: 85 kg

DRUGS (5)
  1. COZAAR [Concomitant]
     Indication: HYPERTENSION
     Route: 048
     Dates: start: 19800101
  2. VYTORIN [Concomitant]
     Indication: BLOOD CHOLESTEROL INCREASED
     Route: 048
     Dates: start: 19800101, end: 20110301
  3. FOSAMAX [Suspect]
     Route: 048
     Dates: end: 20100801
  4. NORVASC [Concomitant]
     Indication: HYPERTENSION
     Route: 065
  5. FOSAMAX [Suspect]
     Indication: OSTEOPENIA
     Route: 048
     Dates: start: 19951201, end: 20100801

REACTIONS (10)
  - LIMB ASYMMETRY [None]
  - ATROPHIC VULVOVAGINITIS [None]
  - BREAST CYST [None]
  - CYST [None]
  - RECTOCELE [None]
  - OSTEOPOROSIS [None]
  - FEMUR FRACTURE [None]
  - CERVICAL POLYP [None]
  - HAEMORRHOIDS [None]
  - ANAEMIA POSTOPERATIVE [None]
